FAERS Safety Report 7055903-9 (Version None)
Quarter: 2010Q4

REPORT INFORMATION
  Report Type: 
  Country: None (occurrence: None)
  Receive Date: 20101021
  Receipt Date: 20101018
  Transmission Date: 20110411
  Serious: Yes (Other)
  Sender: FDA-Public Use
  Company Number: FR-BRISTOL-MYERS SQUIBB COMPANY-15343023

PATIENT
  Sex: Male
  Weight: 4 kg

DRUGS (4)
  1. APROVEL [Suspect]
     Route: 064
     Dates: end: 20100527
  2. LOXEN [Suspect]
     Route: 064
     Dates: start: 20100527
  3. MIFEPRISTONE [Suspect]
     Route: 064
     Dates: end: 20100527
  4. INSULATARD [Suspect]
     Route: 064
     Dates: start: 20100719

REACTIONS (2)
  - CARDIAC MURMUR [None]
  - CRANIOSYNOSTOSIS [None]
